FAERS Safety Report 7157298-9 (Version None)
Quarter: 2010Q4

REPORT INFORMATION
  Report Type: 
  Country: None (occurrence: None)
  Receive Date: 20101214
  Receipt Date: 20101119
  Transmission Date: 20110411
  Serious: No
  Sender: FDA-Public Use
  Company Number: US-PFIZER INC-US-WYE-H18166410

PATIENT
  Sex: Male

DRUGS (1)
  1. ADVIL [Suspect]
     Indication: SINUS HEADACHE

REACTIONS (3)
  - ABDOMINAL DISCOMFORT [None]
  - DRUG INEFFECTIVE [None]
  - PRODUCT DEPOSIT [None]
